FAERS Safety Report 17568090 (Version 3)
Quarter: 2021Q1

REPORT INFORMATION
  Report Type: Spontaneous
  Country: FR (occurrence: FR)
  Receive Date: 20200320
  Receipt Date: 20210118
  Transmission Date: 20210419
  Serious: Yes (Hospitalization, Other)
  Sender: FDA-Public Use
  Company Number: FR-US-PROVELL PHARMACEUTICALS LLC-9088562

PATIENT
  Age: 28 Year
  Sex: Male

DRUGS (7)
  1. LEVOTHYROX [Suspect]
     Active Substance: LEVOTHYROXINE
     Dates: start: 2006
  2. LEVOTHYROX [Suspect]
     Active Substance: LEVOTHYROXINE
     Dosage: RESTARTED
     Dates: start: 20171013, end: 201811
  3. LEVOTHYROX [Suspect]
     Active Substance: LEVOTHYROXINE
     Indication: POST PROCEDURAL HYPOTHYROIDISM
     Dates: start: 2004
  4. LEVOTHYROX [Suspect]
     Active Substance: LEVOTHYROXINE
     Dates: start: 2005
  5. LEVOTHYROX [Suspect]
     Active Substance: LEVOTHYROXINE
     Dates: start: 201612, end: 201710
  6. LEVOTHYROX [Suspect]
     Active Substance: LEVOTHYROXINE
     Dosage: AT HIGH DOSES
     Dates: start: 2012
  7. LEVOTHYROX [Suspect]
     Active Substance: LEVOTHYROXINE
     Dosage: 150 (UNITS UNSPECIFIED)
     Dates: start: 200704, end: 2011

REACTIONS (14)
  - Meniere^s disease [Unknown]
  - Mastoiditis [Unknown]
  - Hypothyroidism [Unknown]
  - Epilepsy [Unknown]
  - Pain in extremity [Unknown]
  - Portal hypertensive gastropathy [Unknown]
  - Hemiparaesthesia [Unknown]
  - Underdose [Unknown]
  - Rectal haemorrhage [Recovering/Resolving]
  - Blood thyroid stimulating hormone increased [Unknown]
  - Otitis media [Unknown]
  - Vestibular disorder [Unknown]
  - Hospitalisation [Recovered/Resolved]
  - Frequent bowel movements [Not Recovered/Not Resolved]

NARRATIVE: CASE EVENT DATE: 2007
